FAERS Safety Report 4998392-8 (Version None)
Quarter: 2006Q2

REPORT INFORMATION
  Report Type: 
  Country: None (occurrence: None)
  Receive Date: 20060508
  Receipt Date: 20060426
  Transmission Date: 20061013
  Serious: Yes (Hospitalization, Disabling)
  Sender: FDA-Public Use
  Company Number: 2006056881

PATIENT
  Age: 77 Year
  Sex: Male

DRUGS (7)
  1. LIPITOR [Suspect]
     Indication: CARDIOVASCULAR EVENT PROPHYLAXIS
     Dosage: 20 MG (20 MG 1 IN 1 D) ORAL
     Route: 048
     Dates: start: 20030201, end: 20040531
  2. ATENOLOL [Concomitant]
  3. PLAVIX [Concomitant]
  4. NORVASC [Concomitant]
  5. COATED ASPIRIN      N(ACETYLSALICYLIC ACID) [Concomitant]
  6. METFORMIN [Concomitant]
  7. MONOPRIL [Concomitant]

REACTIONS (4)
  - ASTHENIA [None]
  - LUMBAR SPINAL STENOSIS [None]
  - MYOPATHY TOXIC [None]
  - POLYNEUROPATHY [None]
